FAERS Safety Report 17300539 (Version 2)
Quarter: 2021Q1

REPORT INFORMATION
  Report Type: Spontaneous
  Country: US (occurrence: US)
  Receive Date: 20200122
  Receipt Date: 20210125
  Transmission Date: 20210419
  Serious: No
  Sender: FDA-Public Use
  Company Number: US-ALLERGAN-1944078US

PATIENT
  Age: 75 Year
  Sex: Female

DRUGS (4)
  1. LAMICTAL [Concomitant]
     Active Substance: LAMOTRIGINE
     Indication: DEPRESSION
     Dosage: UNK, UNKNOWN
     Route: 048
  2. UNKNOWN GLAUCOMA DROPS [Concomitant]
     Indication: GLAUCOMA
     Dosage: UNK
     Route: 047
  3. RESTASIS [Suspect]
     Active Substance: CYCLOSPORINE
     Indication: DRY EYE
     Dosage: 2 GTT, BID
     Route: 047
  4. REFRESH OPTIVE [Concomitant]
     Active Substance: CARBOXYMETHYLCELLULOSE SODIUM\GLYCERIN
     Indication: DRY EYE
     Dosage: UNK UNK, UNKNOWN
     Route: 047

REACTIONS (4)
  - Expired product administered [Unknown]
  - Product storage error [Unknown]
  - Eye irritation [Unknown]
  - Multiple use of single-use product [Unknown]
